FAERS Safety Report 12218410 (Version 1)
Quarter: 2016Q1

REPORT INFORMATION
  Report Type: Spontaneous
  Country: BR (occurrence: BR)
  Receive Date: 20160329
  Receipt Date: 20160329
  Transmission Date: 20160526
  Serious: Yes (Hospitalization, Other)
  Sender: FDA-Public Use
  Company Number: BR-ELI_LILLY_AND_COMPANY-BR201603008988

PATIENT
  Age: 63 Year
  Sex: Male
  Weight: 109 kg

DRUGS (10)
  1. HUMULIN N [Suspect]
     Active Substance: INSULIN HUMAN
     Indication: TYPE 1 DIABETES MELLITUS
     Dosage: 56 IU, EACH MORNING
     Route: 058
     Dates: start: 201202
  2. PURAN [Concomitant]
     Active Substance: LEVOTHYROXINE SODIUM
     Indication: THYROID DISORDER
     Dosage: UNK UNK, UNKNOWN
     Route: 065
  3. GABAPENTINA [Concomitant]
     Active Substance: GABAPENTIN
     Indication: DIABETIC NEUROPATHY
     Dosage: 300 MG, BID
     Route: 065
  4. MALEATO DE ENALAPRIL [Concomitant]
     Dosage: 10 MG, BID
     Route: 065
  5. FUROSEMIDA                         /00032601/ [Concomitant]
     Active Substance: FUROSEMIDE
     Dosage: 40 MG, QD
     Route: 065
  6. NEBIVOLOL                          /01339102/ [Concomitant]
     Active Substance: NEBIVOLOL
     Dosage: 5 MG, UNK
     Route: 065
  7. ROSUVASTATINA CALCICA [Concomitant]
     Dosage: 10 MG, QD
     Route: 065
  8. HUMULIN N [Suspect]
     Active Substance: INSULIN HUMAN
     Dosage: 15 IU, EACH EVENING
     Route: 058
     Dates: start: 2012
  9. AMLODIPINE [Concomitant]
     Active Substance: AMLODIPINE BESYLATE
     Dosage: 2.5 MG, QD
     Route: 065
  10. MONONITRATO DE ISOSSORBIDA [Concomitant]
     Dosage: 20 MG, BID
     Route: 065

REACTIONS (8)
  - Pericardial disease [Recovered/Resolved]
  - Bacterial infection [Recovered/Resolved]
  - Endocarditis [Recovered/Resolved]
  - Incorrect product storage [Unknown]
  - Nosocomial infection [Unknown]
  - Abscess limb [Unknown]
  - Drug dose omission [Unknown]
  - Diabetic retinopathy [Not Recovered/Not Resolved]

NARRATIVE: CASE EVENT DATE: 2012
